FAERS Safety Report 6231075-5 (Version None)
Quarter: 2009Q2

REPORT INFORMATION
  Report Type: 
  Country: None (occurrence: None)
  Receive Date: 20090612
  Receipt Date: 20090612
  Transmission Date: 20091009
  Serious: Yes (Hospitalization)
  Sender: FDA-Public Use
  Company Number: None

PATIENT
  Age: 66 Year
  Sex: Male
  Weight: 93.44 kg

DRUGS (2)
  1. CILOSTAZOL [Suspect]
     Indication: INTERMITTENT CLAUDICATION
     Dosage: 100 MG BID PO
     Route: 048
     Dates: start: 20090504, end: 20090510
  2. CILOSTAZOL [Suspect]
     Indication: PERIPHERAL VASCULAR DISORDER
     Dosage: 100 MG BID PO
     Route: 048
     Dates: start: 20090504, end: 20090510

REACTIONS (1)
  - HYPERSENSITIVITY [None]
